FAERS Safety Report 4327045-4 (Version None)
Quarter: 2004Q1

REPORT INFORMATION
  Report Type: 
  Country: None (occurrence: None)
  Receive Date: 20040319
  Receipt Date: 20040120
  Transmission Date: 20041129
  Serious: No
  Sender: FDA-Public Use
  Company Number: US-JNJFOC-20040104065

PATIENT
  Age: 47 Year
  Sex: Female
  Weight: 49.8957 kg

DRUGS (3)
  1. ORTHO EVRA [Suspect]
     Indication: MENOPAUSAL SYMPTOMS
     Dosage: 1 DOSE(S), 3 IN 4 WEEK, TRANSDERMAL
     Route: 062
  2. VITAMINS (VITAMINS) [Concomitant]
  3. ARMOR THYROID (THYROID) [Concomitant]

REACTIONS (1)
  - METRORRHAGIA [None]
